FAERS Safety Report 25101829 (Version 1)
Quarter: 2025Q1

REPORT INFORMATION
  Report Type: Spontaneous
  Country: US (occurrence: None)
  Receive Date: 20250320
  Receipt Date: 20250320
  Transmission Date: 20250409
  Serious: Yes (Other)
  Sender: FDA-CTU
  Company Number: None

PATIENT
  Age: 75 Year
  Sex: Female
  Weight: 68.4 kg

DRUGS (1)
  1. LINZESS [Suspect]
     Active Substance: LINACLOTIDE
     Indication: Constipation
     Route: 048
     Dates: start: 20250315, end: 20250320

REACTIONS (5)
  - Flushing [None]
  - Dizziness [None]
  - Asthenia [None]
  - Loss of consciousness [None]
  - Somnolence [None]

NARRATIVE: CASE EVENT DATE: 20250320
